FAERS Safety Report 8472937-8 (Version None)
Quarter: 2012Q2

REPORT INFORMATION
  Report Type: 
  Country: None (occurrence: None)
  Receive Date: 20120622
  Receipt Date: 20120622
  Transmission Date: 20120825
  Serious: Yes (Other)
  Sender: FDA-Public Use
  Company Number: None

PATIENT
  Age: 12 Year
  Sex: Female
  Weight: 49.14 kg

DRUGS (1)
  1. LINAGLIPTIN 5MG [Suspect]
     Dosage: 5MG DAILY PO
     Route: 048

REACTIONS (9)
  - LETHARGY [None]
  - PANCREATITIS ACUTE [None]
  - BLOOD GLUCOSE INCREASED [None]
  - PAIN [None]
  - ABDOMINAL PAIN [None]
  - DEHYDRATION [None]
  - NAUSEA [None]
  - DIABETIC KETOACIDOSIS [None]
  - VOMITING [None]
